FAERS Safety Report 9245220 (Version 1)
Quarter: 2013Q2

REPORT INFORMATION
  Report Type: Spontaneous
  Country: US (occurrence: US)
  Receive Date: 20130422
  Receipt Date: 20130422
  Transmission Date: 20140414
  Serious: No
  Sender: FDA-Public Use
  Company Number: US-009507513-1304USA011945

PATIENT
  Sex: Female

DRUGS (1)
  1. AZASITE [Suspect]
     Dosage: BOTH EYES, ONCE A DAY FOR 10 DAYS EVERY MONTH

REACTIONS (2)
  - Inappropriate schedule of drug administration [Unknown]
  - No adverse event [Unknown]
